FAERS Safety Report 17650009 (Version 1)
Quarter: 2020Q2

REPORT INFORMATION
  Report Type: Spontaneous
  Country: US (occurrence: US)
  Receive Date: 20200408
  Receipt Date: 20200408
  Transmission Date: 20200713
  Serious: Yes (Other)
  Sender: FDA-Public Use
  Company Number: None

PATIENT
  Age: 60 Year
  Sex: Male
  Weight: 117 kg

DRUGS (1)
  1. CLINDAMYCIN HCL [Suspect]
     Active Substance: CLINDAMYCIN HYDROCHLORIDE
     Indication: DENTAL DISORDER PROPHYLAXIS
     Dosage: ?          QUANTITY:1 CAPSULE(S);?
     Route: 048
     Dates: start: 20200405, end: 20200407

REACTIONS (1)
  - Diarrhoea [None]

NARRATIVE: CASE EVENT DATE: 20200405
